FAERS Safety Report 8785560 (Version 2)
Quarter: 2012Q4

REPORT INFORMATION
  Report Type: 
  Country: US (occurrence: US)
  Receive Date: 20120914
  Receipt Date: 20121105
  Transmission Date: 20130627
  Serious: No
  Sender: FDA-Public Use
  Company Number: US-PFIZER INC-2012224838

PATIENT
  Age: 11 Year
  Sex: Female
  Weight: 39.9 kg

DRUGS (8)
  1. GENOTROPIN [Suspect]
     Indication: GROWTH HORMONE
     Dosage: 1.6 mg, 1x/day
     Route: 030
     Dates: start: 20120828
  2. GENOTROPIN [Suspect]
     Indication: TURNER^S SYNDROME
  3. TRILEPTAL [Concomitant]
     Indication: SEIZURES
     Dosage: 300 mg, 2x/day
  4. TRILEPTAL [Concomitant]
     Dosage: 5 ml, 2x/day
  5. CETIRIZINE [Concomitant]
     Indication: SINUSITIS
     Dosage: 10 mg, 1x/day
  6. FLUTICASONE [Concomitant]
     Indication: SINUSITIS
     Dosage: 50 mg, 1x/day
     Route: 045
  7. PROAIR [Concomitant]
     Indication: SINUSITIS
     Dosage: UNK, as needed
  8. QVAR [Concomitant]
     Indication: SINUSITIS
     Dosage: 2 DF, 2x/day

REACTIONS (2)
  - Migraine [Recovered/Resolved]
  - Incorrect route of drug administration [Unknown]
